FAERS Safety Report 8437382-X (Version None)
Quarter: 2012Q2

REPORT INFORMATION
  Report Type: 
  Country: None (occurrence: None)
  Receive Date: 20120614
  Receipt Date: 20120313
  Transmission Date: 20120825
  Serious: No
  Sender: FDA-Public Use
  Company Number: US-AMGEN-USASP2012016266

PATIENT
  Age: 67 Year
  Sex: Female

DRUGS (4)
  1. PROLIA [Suspect]
     Indication: OSTEOPOROSIS POSTMENOPAUSAL
     Dosage: 60 MG, Q6MO
     Dates: start: 20111001
  2. MULTIVITAMIN                       /00097801/ [Concomitant]
  3. OMEGA 3                            /01334101/ [Concomitant]
  4. CALCIUM [Concomitant]

REACTIONS (2)
  - BLOOD TEST ABNORMAL [None]
  - DEVICE BREAKAGE [None]
